FAERS Safety Report 7323707-5 (Version None)
Quarter: 2011Q1

REPORT INFORMATION
  Report Type: 
  Country: None (occurrence: None)
  Receive Date: 20110217
  Receipt Date: 20110203
  Transmission Date: 20110831
  Serious: Yes (Other)
  Sender: FDA-Public Use
  Company Number: 012008

PATIENT
  Age: 84 Year
  Sex: Female

DRUGS (4)
  1. METFORIN (METFORMIN) [Concomitant]
  2. GLICLAZIDE (GLICLAZIDE) [Concomitant]
  3. MACUGEN [Suspect]
     Indication: MACULAR DEGENERATION
     Dosage: INTRAOCULAR
     Route: 031
     Dates: start: 20100701
  4. ADALAT [Concomitant]

REACTIONS (3)
  - DELUSIONAL DISORDER, UNSPECIFIED TYPE [None]
  - HALLUCINATION, AUDITORY [None]
  - PSYCHOTIC DISORDER [None]
